FAERS Safety Report 5702321-9 (Version None)
Quarter: 2008Q2

REPORT INFORMATION
  Report Type: 
  Country: None (occurrence: None)
  Receive Date: 20080411
  Receipt Date: 20080408
  Transmission Date: 20081010
  Serious: Yes (Hospitalization)
  Sender: FDA-Public Use
  Company Number: JP-ASTRAZENECA-2008AP02528

PATIENT
  Age: 78 Year
  Sex: Female

DRUGS (3)
  1. CRESTOR [Suspect]
     Route: 048
     Dates: start: 20070719, end: 20080124
  2. PANALDINE [Concomitant]
     Dosage: DOSE UNKNOWN
     Route: 048
  3. BUFFERIN [Concomitant]
     Dosage: DOSE UNKNOWN
     Route: 048

REACTIONS (1)
  - CHEST PAIN [None]
